FAERS Safety Report 5256397-6 (Version None)
Quarter: 2007Q1

REPORT INFORMATION
  Report Type: 
  Country: None (occurrence: None)
  Receive Date: 20061204
  Receipt Date: 20060911
  Transmission Date: 20070707
  Serious: No
  Sender: FDA-Public Use
  Company Number: 2006-BP-10653BP

PATIENT
  Age: 60 Year
  Sex: Female

DRUGS (11)
  1. SPIRIVA [Suspect]
     Indication: EMPHYSEMA
     Dosage: 18 MCG (18 MCG, 1 IN 1 D), IH
     Route: 055
     Dates: start: 20050101
  2. SINGULAIR [Concomitant]
  3. LASIX [Concomitant]
  4. ZOLOFT [Concomitant]
  5. FLOMAX (MORNIFLUMATE) [Concomitant]
  6. ALBUTEROL [Concomitant]
  7. FLOVENT [Concomitant]
  8. ISORDIL [Concomitant]
  9. TRAMADOL HCL [Concomitant]
  10. ALTACE [Concomitant]
  11. PRILOSEC [Concomitant]

REACTIONS (1)
  - DRUG INEFFECTIVE [None]
